FAERS Safety Report 9402325 (Version 1)
Quarter: 2013Q3

REPORT INFORMATION
  Report Type: Spontaneous
  Country: CN (occurrence: CN)
  Receive Date: 20130716
  Receipt Date: 20130716
  Transmission Date: 20140515
  Serious: Yes (Other)
  Sender: FDA-Public Use
  Company Number: CN-BAXTER-2013BAX026732

PATIENT
  Age: 31 Year
  Sex: Female

DRUGS (2)
  1. 5% GLUCOSE INJECTION [Suspect]
     Indication: ADJUVANT THERAPY
     Route: 041
     Dates: start: 20101224, end: 20101224
  2. OXALIPLATIN [Suspect]
     Indication: ADJUVANT THERAPY
     Route: 041
     Dates: start: 20101224, end: 20101224

REACTIONS (2)
  - Vomiting [Recovering/Resolving]
  - Nausea [Recovering/Resolving]
